FAERS Safety Report 19620448 (Version 2)
Quarter: 2021Q3

REPORT INFORMATION
  Report Type: Other
  Country: BE (occurrence: BE)
  Receive Date: 20210728
  Receipt Date: 20210811
  Transmission Date: 20211014
  Serious: Yes (Other)
  Sender: FDA-Public Use
  Company Number: BE-ROCHE-2874670

PATIENT
  Age: 40 Year
  Sex: Female
  Weight: 73 kg

DRUGS (17)
  1. SOLU?MEDROL [Concomitant]
     Active Substance: METHYLPREDNISOLONE SODIUM SUCCINATE
     Dates: start: 20210708, end: 20210708
  2. RIVOTRIL [Concomitant]
     Active Substance: CLONAZEPAM
     Route: 048
     Dates: start: 201506
  3. OXYBUTYNIN. [Concomitant]
     Active Substance: OXYBUTYNIN CHLORIDE
     Route: 048
     Dates: start: 201506
  4. PANTOPRAZOLE [Concomitant]
     Active Substance: PANTOPRAZOLE
     Route: 048
     Dates: start: 20210708, end: 20210708
  5. AMANTADINE. [Concomitant]
     Active Substance: AMANTADINE HYDROCHLORIDE
     Route: 048
     Dates: start: 2017
  6. PANTOMED (BELGIUM) [Concomitant]
     Active Substance: PANTOPRAZOLE SODIUM
     Route: 048
  7. D?CURE [Concomitant]
     Active Substance: CHOLECALCIFEROL
     Dosage: DRUG DOSE FIRST ADMINISTERED IS 1 AMPULE ;ONGOING: YES
     Route: 048
     Dates: start: 2013
  8. TRAMADOL EG [Concomitant]
     Route: 048
     Dates: start: 201506
  9. OCRELIZUMAB. [Suspect]
     Active Substance: OCRELIZUMAB
     Indication: PRIMARY PROGRESSIVE MULTIPLE SCLEROSIS
     Route: 042
     Dates: start: 20201105
  10. COVID?19 VACCINE [Concomitant]
     Dosage: DRUG DOSE FIRST ADMINISTERED IS 0.5 ML (MILLILITER CM3) ;ONGOING: NO
     Route: 030
     Dates: start: 20210525, end: 20210525
  11. IBUPROFEN. [Concomitant]
     Active Substance: IBUPROFEN
     Route: 048
  12. AMLODIPINE EG [Concomitant]
     Active Substance: AMLODIPINE BESYLATE
     Route: 048
     Dates: start: 201807
  13. DULOXETINE EG [Concomitant]
     Route: 048
  14. DAFALGAN [Concomitant]
     Active Substance: ACETAMINOPHEN
     Route: 048
  15. ACYCLOVIR. [Concomitant]
     Active Substance: ACYCLOVIR
     Route: 048
     Dates: start: 20210420, end: 20210427
  16. CETRIZINE [Concomitant]
     Active Substance: CETIRIZINE HYDROCHLORIDE
     Route: 048
     Dates: start: 20210708, end: 20210708
  17. PARACETAMOL FRESENIUS [Concomitant]
     Dates: start: 20210708, end: 20210708

REACTIONS (1)
  - Ophthalmic herpes zoster [Recovering/Resolving]

NARRATIVE: CASE EVENT DATE: 20210416
